FAERS Safety Report 5026254-9 (Version None)
Quarter: 2006Q2

REPORT INFORMATION
  Report Type: 
  Country: None (occurrence: None)
  Receive Date: 20060608
  Receipt Date: 20060529
  Transmission Date: 20061013
  Serious: Yes (Other)
  Sender: FDA-Public Use
  Company Number: 2006066233

PATIENT
  Age: 26 Year
  Sex: Female

DRUGS (1)
  1. DEPO-PROVERA [Suspect]
     Indication: CONTRACEPTION
     Dosage: 150 MG (150 MG, MOST RECENT INJECTION, TRIMESTRAL), INTRAMUSCULAR
     Route: 030
     Dates: start: 20060328, end: 20060328

REACTIONS (4)
  - ABSCESS [None]
  - APPLICATION SITE PAIN [None]
  - APPLICATION SITE PAPULES [None]
  - HYPERAEMIA [None]
